FAERS Safety Report 14661463 (Version 1)
Quarter: 2018Q1

REPORT INFORMATION
  Report Type: Spontaneous
  Country: US (occurrence: US)
  Receive Date: 20180320
  Receipt Date: 20180320
  Transmission Date: 20180509
  Serious: No
  Sender: FDA-Public Use
  Company Number: US-MYLANLABS-2018M1016385

PATIENT
  Sex: Female
  Weight: 68 kg

DRUGS (2)
  1. EMSAM [Suspect]
     Active Substance: SELEGILINE
     Indication: DEPRESSION
     Dosage: 6 MG, UNK
     Route: 062
  2. EMSAM [Suspect]
     Active Substance: SELEGILINE
     Dosage: UNK
     Route: 062

REACTIONS (3)
  - Anxiety [Unknown]
  - Thinking abnormal [Unknown]
  - Depressed mood [Unknown]
